FAERS Safety Report 9456809 (Version 1)
Quarter: 2013Q3

REPORT INFORMATION
  Report Type: Spontaneous
  Country: US (occurrence: US)
  Receive Date: 20130813
  Receipt Date: 20130813
  Transmission Date: 20140515
  Serious: Yes (Hospitalization)
  Sender: FDA-Public Use
  Company Number: US-AMGEN-USASP2013055240

PATIENT
  Age: 63 Year
  Sex: Male
  Weight: 126.98 kg

DRUGS (3)
  1. ENBREL [Suspect]
     Indication: PRODUCT USED FOR UNKNOWN INDICATION
     Dosage: 50 MG, QWK
     Route: 058
  2. LOSARTAN POTASSIUM [Concomitant]
     Dosage: 100 MG, UNK
  3. METOPROLOL [Concomitant]
     Dosage: 25 MG, UNK

REACTIONS (1)
  - Skin infection [Unknown]
